FAERS Safety Report 4706464-8 (Version None)
Quarter: 2005Q3

REPORT INFORMATION
  Report Type: 
  Country: None (occurrence: None)
  Receive Date: 20050705
  Receipt Date: 20050622
  Transmission Date: 20060218
  Serious: Yes (Other)
  Sender: FDA-Public Use
  Company Number: FR-GLAXOSMITHKLINE-B0349104B

PATIENT
  Sex: Female

DRUGS (2)
  1. DEROXAT [Suspect]
     Indication: PANIC REACTION
  2. PAROXETINE HCL [Suspect]

REACTIONS (4)
  - DRUG EXPOSURE DURING PREGNANCY [None]
  - DRUG EXPOSURE VIA BREAST MILK [None]
  - FOETAL ARRHYTHMIA [None]
  - PREMATURE BABY [None]
